FAERS Safety Report 12480770 (Version 1)
Quarter: 2016Q2

REPORT INFORMATION
  Report Type: Spontaneous
  Country: GB (occurrence: GB)
  Receive Date: 20160620
  Receipt Date: 20160620
  Transmission Date: 20160815
  Serious: No
  Sender: FDA-Public Use
  Company Number: GB-JNJFOC-20160521567

PATIENT
  Sex: Female

DRUGS (1)
  1. DUROGESIC DTRANS [Suspect]
     Active Substance: FENTANYL
     Indication: PAIN
     Route: 062

REACTIONS (11)
  - Wrong technique in product usage process [Unknown]
  - Underdose [Unknown]
  - Product adhesion issue [Unknown]
  - Pruritus generalised [Unknown]
  - Product quality issue [Unknown]
  - General physical condition abnormal [Unknown]
  - Incorrect drug administration duration [Unknown]
  - Off label use [Unknown]
  - Drug ineffective [Unknown]
  - Sleep disorder [Unknown]
  - Mental disorder [Unknown]
